FAERS Safety Report 5514584-3 (Version None)
Quarter: 2007Q4

REPORT INFORMATION
  Report Type: 
  Country: None (occurrence: None)
  Receive Date: 20071113
  Receipt Date: 20071109
  Transmission Date: 20080405
  Serious: Yes (Hospitalization)
  Sender: FDA-Public Use
  Company Number: B0494691A

PATIENT
  Age: 60 Year
  Sex: Male

DRUGS (12)
  1. PAXIL [Suspect]
     Indication: DEPRESSION
     Route: 048
  2. AMOXAPINE [Concomitant]
     Route: 048
  3. WINTERMIN [Concomitant]
     Route: 065
  4. SOLANAX [Concomitant]
     Route: 048
  5. DEPAS [Concomitant]
     Route: 048
  6. DORAL [Concomitant]
     Route: 048
  7. ROHYPNOL [Concomitant]
     Route: 065
  8. ZOLPIDEM [Concomitant]
     Route: 048
  9. VEGETAMIN [Concomitant]
     Route: 048
  10. VEGETAMIN-B [Concomitant]
     Route: 048
  11. TOLEDOMIN [Concomitant]
     Route: 048
     Dates: start: 20070718
  12. UNKNOWN DRUG [Concomitant]
     Route: 048
     Dates: start: 20070921

REACTIONS (2)
  - C-REACTIVE PROTEIN INCREASED [None]
  - HEPATIC ENZYME INCREASED [None]
